FAERS Safety Report 8275067-3 (Version None)
Quarter: 2012Q2

REPORT INFORMATION
  Report Type: 
  Country: None (occurrence: None)
  Receive Date: 20120411
  Receipt Date: 20120402
  Transmission Date: 20120825
  Serious: Yes (Other)
  Sender: FDA-Public Use
  Company Number: US-ASTRAZENECA-2010SE01349

PATIENT
  Age: 86 Year
  Sex: Female

DRUGS (5)
  1. TOPROL-XL [Suspect]
     Route: 048
  2. ZESTRIL [Suspect]
     Dosage: GENERIC
     Route: 048
  3. ZESTRIL [Suspect]
     Route: 048
  4. ANTIBIOTICS [Concomitant]
  5. ASCRITPION [Concomitant]

REACTIONS (11)
  - LOSS OF CONSCIOUSNESS [None]
  - HYPERTENSION [None]
  - ESCHERICHIA INFECTION [None]
  - DRUG INEFFECTIVE [None]
  - CATARACT [None]
  - HEART RATE INCREASED [None]
  - NOCTURIA [None]
  - BURNING SENSATION [None]
  - HYPOTENSION [None]
  - BLOOD CHOLESTEROL INCREASED [None]
  - NIGHTMARE [None]
